FAERS Safety Report 7553625-9 (Version None)
Quarter: 2011Q2

REPORT INFORMATION
  Report Type: 
  Country: None (occurrence: None)
  Receive Date: 20110617
  Receipt Date: 20110607
  Transmission Date: 20111010
  Serious: Yes (Hospitalization, Other)
  Sender: FDA-Public Use
  Company Number: US-JNJFOC-20110604015

PATIENT
  Age: 35 Year
  Sex: Female

DRUGS (9)
  1. OLANZAPINE [Suspect]
     Indication: AGITATION
     Route: 048
  2. VALPROIC ACID [Suspect]
     Indication: AGITATION
     Dosage: EVERY NIGHT
     Route: 048
  3. PERPHENAZINE [Suspect]
     Indication: AGITATION
     Route: 048
  4. BENZTROPINE MESYLATE [Suspect]
     Route: 048
  5. RISPERIDONE [Suspect]
     Route: 048
  6. HALOPERIDOL [Suspect]
     Indication: AGITATION
     Dosage: DOSES AS NEEDED
     Route: 065
  7. BENZTROPINE MESYLATE [Suspect]
     Indication: EXTRAPYRAMIDAL DISORDER
     Route: 048
  8. RISPERIDONE [Suspect]
     Indication: AGITATION
     Route: 048
  9. LITHIUM CARBONATE [Suspect]
     Indication: AGITATION
     Route: 048

REACTIONS (1)
  - ILEUS PARALYTIC [None]
